FAERS Safety Report 4343701-6 (Version None)
Quarter: 2004Q2

REPORT INFORMATION
  Report Type: 
  Country: None (occurrence: None)
  Receive Date: 20040419
  Receipt Date: 20040406
  Transmission Date: 20050107
  Serious: Yes (Hospitalization)
  Sender: FDA-Public Use
  Company Number: 2004UW06936

PATIENT
  Age: 52 Year
  Sex: Female

DRUGS (13)
  1. CRESTOR [Suspect]
     Indication: HYPERCHOLESTEROLAEMIA
     Dosage: 10 MG QD PO
     Route: 048
     Dates: start: 20040330
  2. CRESTOR [Suspect]
     Indication: HYPERCHOLESTEROLAEMIA
     Dosage: 40 MG QD PO
     Route: 048
  3. PERCOCET [Concomitant]
  4. METHADONE HCL [Concomitant]
  5. LOTREL [Concomitant]
  6. TRICOR [Concomitant]
  7. RESTORIL [Concomitant]
  8. QUININE SULFATE [Concomitant]
  9. MOBIC [Concomitant]
  10. LEXAPRO [Concomitant]
  11. VALIUM [Concomitant]
  12. FAMVIR [Concomitant]
  13. ENALAPRIL MALEATE [Concomitant]

REACTIONS (10)
  - BLOOD AMYLASE INCREASED [None]
  - BLOOD PRESSURE DECREASED [None]
  - CEREBROVASCULAR ACCIDENT [None]
  - COMA [None]
  - DECUBITUS ULCER [None]
  - HEART RATE INCREASED [None]
  - RENAL FAILURE [None]
  - RESPIRATORY FAILURE [None]
  - RHABDOMYOLYSIS [None]
  - RHONCHI [None]
